FAERS Safety Report 12863997 (Version 2)
Quarter: 2016Q4

REPORT INFORMATION
  Report Type: Spontaneous
  Country: US (occurrence: US)
  Receive Date: 20161019
  Receipt Date: 20161213
  Transmission Date: 20170207
  Serious: Yes (Hospitalization)
  Sender: FDA-Public Use
  Company Number: US-AMGEN-USASP2016143995

PATIENT
  Age: 75 Year
  Sex: Female
  Weight: 63.49 kg

DRUGS (2)
  1. PROCRIT [Suspect]
     Active Substance: ERYTHROPOIETIN
     Dosage: 40000 UNIT, QWK (40,000 U/WEEK)
     Route: 058
     Dates: start: 201510
  2. PROCRIT [Suspect]
     Active Substance: ERYTHROPOIETIN
     Indication: HAEMOGLOBIN ABNORMAL
     Dosage: 1 ML, ONCE WEEKLY
     Route: 058
     Dates: start: 2000

REACTIONS (10)
  - Blood sodium decreased [Unknown]
  - Incorrect product storage [Unknown]
  - Inappropriate schedule of drug administration [Unknown]
  - Blood potassium decreased [Unknown]
  - Dyspepsia [Recovering/Resolving]
  - Malaise [Recovering/Resolving]
  - Abnormal loss of weight [Recovering/Resolving]
  - Electrolyte imbalance [Recovering/Resolving]
  - Asthenia [Recovering/Resolving]
  - Haemoglobin abnormal [Not Recovered/Not Resolved]

NARRATIVE: CASE EVENT DATE: 201609
